FAERS Safety Report 8434046-3 (Version None)
Quarter: 2012Q2

REPORT INFORMATION
  Report Type: 
  Country: None (occurrence: None)
  Receive Date: 20120613
  Receipt Date: 20120601
  Transmission Date: 20120825
  Serious: No
  Sender: FDA-Public Use
  Company Number: US-ASTRAZENECA-2012SE36958

PATIENT
  Age: 64 Year
  Sex: Male
  Weight: 106.6 kg

DRUGS (4)
  1. XANAX [Concomitant]
     Indication: SLEEP DISORDER
  2. HYDROCODONE [Concomitant]
     Indication: PAIN
  3. ALLOPURINOL [Concomitant]
     Indication: GOUTY ARTHRITIS
  4. NEXIUM [Suspect]
     Indication: GASTROOESOPHAGEAL REFLUX DISEASE
     Route: 048

REACTIONS (7)
  - GOUT [None]
  - EATING DISORDER [None]
  - GASTROOESOPHAGEAL REFLUX DISEASE [None]
  - INTENTIONAL DRUG MISUSE [None]
  - DYSPEPSIA [None]
  - SLEEP DISORDER DUE TO GENERAL MEDICAL CONDITION, INSOMNIA TYPE [None]
  - CHEST PAIN [None]
